FAERS Safety Report 4650093-1 (Version None)
Quarter: 2005Q2

REPORT INFORMATION
  Report Type: 
  Country: None (occurrence: None)
  Receive Date: 20050428
  Receipt Date: 20050412
  Transmission Date: 20051028
  Serious: Yes (Hospitalization)
  Sender: FDA-Public Use
  Company Number: 10916

PATIENT
  Age: 75 Year
  Sex: Male

DRUGS (7)
  1. METHOTREXATE [Suspect]
     Indication: RHEUMATOID ARTHRITIS
     Dosage: 20 MG WEEKLY SC
     Route: 058
     Dates: start: 20031210, end: 20040312
  2. CYCLOSPORINE [Concomitant]
  3. DICLOFENAC SODIUM [Concomitant]
  4. DEXTROPROPOXYPHENE HYDROCHLORIDE [Concomitant]
  5. METHYLPREDNISOLONE [Concomitant]
  6. FOLIC ACID [Concomitant]
  7. PREDNISOLONE [Concomitant]

REACTIONS (6)
  - C-REACTIVE PROTEIN INCREASED [None]
  - GENERAL PHYSICAL HEALTH DETERIORATION [None]
  - LUNG INFILTRATION [None]
  - NASOPHARYNGITIS [None]
  - NIGHT SWEATS [None]
  - WEIGHT DECREASED [None]
